FAERS Safety Report 26159109 (Version 1)
Quarter: 2025Q4

REPORT INFORMATION
  Report Type: Spontaneous
  Country: CN (occurrence: CN)
  Receive Date: 20251216
  Receipt Date: 20251216
  Transmission Date: 20260117
  Serious: Yes (Other)
  Sender: BAXTER
  Company Number: None

PATIENT
  Age: 48 Year
  Sex: Female
  Weight: 65 kg

DRUGS (2)
  1. CYCLOPHOSPHAMIDE [Suspect]
     Active Substance: CYCLOPHOSPHAMIDE
     Indication: Neoplasm malignant
     Dosage: 1 G, QD, IVGTT
     Route: 041
     Dates: start: 20251121, end: 20251121
  2. SODIUM CHLORIDE [Suspect]
     Active Substance: SODIUM CHLORIDE
     Dosage: 500 ML, QD, 0.9% SODIUM CHLORIDE WITH CYCLOPHOSPHAMIDE IVGTT
     Route: 041
     Dates: start: 20251121, end: 20251121

REACTIONS (6)
  - Myelosuppression [Unknown]
  - Neutrophil count decreased [Unknown]
  - White blood cell count decreased [Unknown]
  - Lymphocyte count decreased [Unknown]
  - Mean platelet volume decreased [Unknown]
  - Plateletcrit decreased [Unknown]

NARRATIVE: CASE EVENT DATE: 20251204
